FAERS Safety Report 17765896 (Version 1)
Quarter: 2020Q2

REPORT INFORMATION
  Report Type: Spontaneous
  Country: US (occurrence: US)
  Receive Date: 20200511
  Receipt Date: 20200511
  Transmission Date: 20200714
  Serious: No
  Sender: FDA-Public Use
  Company Number: None

PATIENT
  Age: 32 Year
  Sex: Female

DRUGS (1)
  1. DULOXETINE (DULOXETINE HCL 30MG CAP, EC) [Suspect]
     Active Substance: DULOXETINE HYDROCHLORIDE
     Dates: start: 20190122, end: 20190222

REACTIONS (3)
  - Mood swings [None]
  - Suicidal ideation [None]
  - Depression [None]

NARRATIVE: CASE EVENT DATE: 20190222
